FAERS Safety Report 7244376-9 (Version None)
Quarter: 2011Q1

REPORT INFORMATION
  Report Type: 
  Country: None (occurrence: None)
  Receive Date: 20110118
  Receipt Date: 20110105
  Transmission Date: 20110831
  Serious: Yes (Other)
  Sender: FDA-Public Use
  Company Number: 023407

PATIENT
  Sex: Female
  Weight: 110.7 kg

DRUGS (3)
  1. CIMZIA [Suspect]
     Indication: CROHN'S DISEASE
     Dosage: (SUBCUTANEOUS)
     Route: 058
     Dates: start: 20100609
  2. PENTASA [Concomitant]
  3. PREDNISONE TAB [Concomitant]

REACTIONS (4)
  - CUSHINGOID [None]
  - ACARODERMATITIS [None]
  - RASH PUSTULAR [None]
  - BURNING SENSATION [None]
